FAERS Safety Report 4320740-2 (Version None)
Quarter: 2004Q1

REPORT INFORMATION
  Report Type: 
  Country: None (occurrence: None)
  Receive Date: 20040318
  Receipt Date: 20040304
  Transmission Date: 20041129
  Serious: Yes (Hospitalization)
  Sender: FDA-Public Use
  Company Number: 2004-BP-01657MX

PATIENT
  Age: 82 Year
  Sex: Male

DRUGS (2)
  1. SECOTEX CAPSULES 0.4MG (KA) (TAMSULOSIN HYDROCHLORIDE) [Suspect]
     Indication: BENIGN PROSTATIC HYPERPLASIA
     Dosage: 0.4 MG (0.4 MG, 1 KA OD), PO
     Route: 048
     Dates: start: 20030808
  2. ARCOXIA [Concomitant]

REACTIONS (1)
  - DRUG INEFFECTIVE [None]
